FAERS Safety Report 17258156 (Version 5)
Quarter: 2020Q4

REPORT INFORMATION
  Report Type: Spontaneous
  Country: IN (occurrence: IN)
  Receive Date: 20200110
  Receipt Date: 20201022
  Transmission Date: 20210113
  Serious: Yes (Other)
  Sender: FDA-Public Use
  Company Number: IN-PFIZER INC-2020012402

PATIENT
  Age: 18 Year
  Sex: Female

DRUGS (4)
  1. SUTENT [Suspect]
     Active Substance: SUNITINIB MALATE
     Indication: METASTATIC RENAL CELL CARCINOMA
     Dosage: 50 MG, CYCLIC, DAILY FOR 14 DAYS WITH 1 WEEK OFF
     Route: 048
     Dates: start: 20180414
  2. SUTENT [Suspect]
     Active Substance: SUNITINIB MALATE
     Dosage: 37.5 MG, CYCLIC (OD FOR 14 WEEKS ON 1 WEEK OFF)
     Route: 048
  3. SUTENT [Suspect]
     Active Substance: SUNITINIB MALATE
     Dosage: 37.5 MG, CYCLIC, FOR 14 DAYS WITH 1 WEEK OFF
     Route: 048
  4. SUTENT [Suspect]
     Active Substance: SUNITINIB MALATE
     Dosage: 50 MG, CYCLIC (OD FOR 14 WEEKS ON 1 WEEK OFF)
     Route: 048

REACTIONS (3)
  - Second primary malignancy [Unknown]
  - Neoplasm progression [Unknown]
  - Alveolar soft part sarcoma metastatic [Unknown]
